FAERS Safety Report 4592748-3 (Version None)
Quarter: 2005Q1

REPORT INFORMATION
  Report Type: 
  Country: None (occurrence: None)
  Receive Date: 20050228
  Receipt Date: 20040908
  Transmission Date: 20050727
  Serious: Yes (Other)
  Sender: FDA-Public Use
  Company Number: ES-BRISTOL-MYERS SQUIBB COMPANY-12695060

PATIENT
  Age: 45 Year
  Sex: Male

DRUGS (5)
  1. ATAZANAVIR [Suspect]
     Indication: HIV INFECTION
     Route: 048
     Dates: start: 20040204
  2. RITONAVIR [Interacting]
     Indication: HIV INFECTION
     Route: 048
     Dates: start: 20040204
  3. VARDENAFIL [Interacting]
     Dates: start: 20040616, end: 20040616
  4. LAMIVUDINE [Concomitant]
     Indication: HIV INFECTION
     Route: 048
     Dates: start: 20040204
  5. TENOFOVIR [Concomitant]
     Indication: HIV INFECTION
     Route: 048
     Dates: start: 20040204

REACTIONS (6)
  - BACK PAIN [None]
  - DRUG INTERACTION [None]
  - HEADACHE [None]
  - MYALGIA [None]
  - PRIAPISM [None]
  - SELF-MEDICATION [None]
